FAERS Safety Report 5072971-4 (Version None)
Quarter: 2006Q3

REPORT INFORMATION
  Report Type: 
  Country: None (occurrence: None)
  Receive Date: 20060802
  Receipt Date: 20060720
  Transmission Date: 20061208
  Serious: Yes (Hospitalization)
  Sender: FDA-Public Use
  Company Number: 2006069663

PATIENT
  Age: 82 Year
  Sex: Female
  Weight: 33 kg

DRUGS (5)
  1. IRINOTECAN HCL [Suspect]
     Indication: OVARIAN CANCER
     Dosage: 25 MG (1 IN 1 WK), INTRAVENOUS
     Route: 042
     Dates: start: 20060406, end: 20060413
  2. LANSOPRAZOLE [Concomitant]
  3. JUZENTAIHOTO (HERBAL EXTRACTS NOS) [Concomitant]
  4. ALLOID (SODIUM ALGINATE) [Concomitant]
  5. FLUCALIN (ASCORBIC ACID, CALCIUM GLUCEPTATE, CALCIUM GLUCONATE) [Concomitant]

REACTIONS (9)
  - ANOREXIA [None]
  - INTERSTITIAL LUNG DISEASE [None]
  - LEUKOPENIA [None]
  - LUNG INFECTION [None]
  - LYMPHANGIOSIS CARCINOMATOSA [None]
  - MALAISE [None]
  - MALIGNANT ASCITES [None]
  - MALIGNANT NEOPLASM PROGRESSION [None]
  - PYREXIA [None]
